FAERS Safety Report 17808462 (Version 2)
Quarter: 2020Q2

REPORT INFORMATION
  Report Type: Spontaneous
  Country: IT (occurrence: IT)
  Receive Date: 20200520
  Receipt Date: 20200525
  Transmission Date: 20200714
  Serious: No
  Sender: FDA-Public Use
  Company Number: IT-BAUSCH-BL-2020-014869

PATIENT
  Age: 26 Year

DRUGS (2)
  1. ASACOL [Suspect]
     Active Substance: MESALAMINE
     Indication: COLITIS
     Route: 048
  2. NORMIX [Suspect]
     Active Substance: RIFAXIMIN
     Indication: COLITIS
     Dosage: FOR 7 DAYS EVERY MONTH
     Route: 048

REACTIONS (3)
  - Drug ineffective [Unknown]
  - Blood iron decreased [Unknown]
  - Serum ferritin decreased [Unknown]
